FAERS Safety Report 4535773-0 (Version None)
Quarter: 2004Q4

REPORT INFORMATION
  Report Type: 
  Country: None (occurrence: None)
  Receive Date: 20041223
  Receipt Date: 20040303
  Transmission Date: 20050328
  Serious: No
  Sender: FDA-Public Use
  Company Number: US-GLAXOSMITHKLINE-A0501118A

PATIENT
  Age: 65 Year
  Sex: Female

DRUGS (4)
  1. FLONASE [Suspect]
     Dosage: 2SPR PER DAY
     Route: 045
  2. CLARINEX [Concomitant]
  3. SINGULAIR [Concomitant]
  4. WELLBUTRIN XL [Concomitant]

REACTIONS (2)
  - EPISTAXIS [None]
  - SINUSITIS [None]
